FAERS Safety Report 8495210-0 (Version None)
Quarter: 2012Q3

REPORT INFORMATION
  Report Type: 
  Country: None (occurrence: None)
  Receive Date: 20120702
  Receipt Date: 20120702
  Transmission Date: 20120928
  Serious: Yes (Other)
  Sender: FDA-Public Use
  Company Number: None

PATIENT
  Age: 38 Year
  Sex: Female
  Weight: 68.0396 kg

DRUGS (5)
  1. TRAZODONE HYDROCHLORIDE [Concomitant]
  2. TOPROL-XL [Concomitant]
  3. PROTONIX [Concomitant]
  4. PAXIL [Concomitant]
  5. SAPHRIS [Suspect]
     Indication: BIPOLAR DISORDER
     Dosage: 20MG 1 TIME AT NIGHT SL
     Route: 060
     Dates: start: 20110414, end: 20120629

REACTIONS (1)
  - DIABETES MELLITUS [None]
